FAERS Safety Report 24107162 (Version 2)
Quarter: 2024Q3

REPORT INFORMATION
  Report Type: Spontaneous
  Country: US (occurrence: US)
  Receive Date: 20240718
  Receipt Date: 20240718
  Transmission Date: 20241017
  Serious: Yes (Hospitalization)
  Sender: ROCHE
  Company Number: US-ROCHE-10000023080

PATIENT

DRUGS (1)
  1. PHESGO [Suspect]
     Active Substance: HYALURONIDASE-ZZXF\PERTUZUMAB\TRASTUZUMAB
     Indication: Product used for unknown indication
     Route: 065

REACTIONS (5)
  - Blood pressure decreased [Unknown]
  - Dehydration [Unknown]
  - Dyspnoea [Unknown]
  - Cyanosis [Unknown]
  - Fatigue [Unknown]
